FAERS Safety Report 25616856 (Version 2)
Quarter: 2025Q3

REPORT INFORMATION
  Report Type: Spontaneous
  Country: US (occurrence: US)
  Receive Date: 20250729
  Receipt Date: 20250811
  Transmission Date: 20251021
  Serious: No
  Sender: ABBVIE
  Company Number: US-ABBVIE-6383886

PATIENT
  Age: 63 Year
  Sex: Male
  Weight: 81.646 kg

DRUGS (7)
  1. VYALEV [Suspect]
     Active Substance: FOSCARBIDOPA\FOSLEVODOPA
     Indication: Parkinson^s disease
     Route: 058
     Dates: start: 20241216
  2. ANASTROZOLE [Concomitant]
     Active Substance: ANASTROZOLE
     Indication: Oestradiol increased
  3. VITAMIN B12 [Concomitant]
     Active Substance: CYANOCOBALAMIN
     Indication: Vitamin supplementation
  4. FLECAINIDE [Concomitant]
     Active Substance: FLECAINIDE
     Indication: Heart rate irregular
     Route: 048
  5. FLECAINIDE [Concomitant]
     Active Substance: FLECAINIDE
     Indication: Heart rate irregular
     Route: 048
  6. ATENOLOL [Concomitant]
     Active Substance: ATENOLOL
     Indication: Heart rate irregular
  7. TESTOSTERONE [Concomitant]
     Active Substance: TESTOSTERONE
     Indication: Hormone therapy
     Route: 030

REACTIONS (1)
  - Product storage error [Unknown]

NARRATIVE: CASE EVENT DATE: 20250722
